FAERS Safety Report 9789869 (Version 1)
Quarter: 2013Q4

REPORT INFORMATION
  Report Type: Spontaneous
  Country: US (occurrence: None)
  Receive Date: 20131230
  Receipt Date: 20131230
  Transmission Date: 20140711
  Serious: Yes (Disabling, Other)
  Sender: FDA-Public Use
  Company Number: None

PATIENT
  Age: 81 Year
  Sex: Female
  Weight: 50.35 kg

DRUGS (5)
  1. CIPROFLOXACIN [Suspect]
     Indication: DIVERTICULITIS
     Route: 048
     Dates: start: 20131119, end: 20131121
  2. LEVOTHYROXIN [Concomitant]
  3. LISINOPRIL [Concomitant]
  4. PANTOPROZOLE [Concomitant]
  5. DIVALOPROEX ER [Concomitant]

REACTIONS (2)
  - Pain in extremity [None]
  - Vulvovaginal pain [None]
